FAERS Safety Report 10202188 (Version 1)
Quarter: 2014Q2

REPORT INFORMATION
  Report Type: Spontaneous
  Country: RU (occurrence: RU)
  Receive Date: 20140528
  Receipt Date: 20140528
  Transmission Date: 20141212
  Serious: Yes (Other)
  Sender: FDA-Public Use
  Company Number: RU-VIIV HEALTHCARE LIMITED-B0997443A

PATIENT
  Sex: Male

DRUGS (5)
  1. LAMIVUDINE-HIV [Suspect]
     Indication: HIV INFECTION
     Route: 065
     Dates: start: 201212
  2. STAVUDINE [Suspect]
     Indication: HIV INFECTION
     Route: 065
     Dates: start: 201212
  3. EFAVIRENZ [Suspect]
     Indication: HIV INFECTION
     Route: 065
     Dates: start: 201212
  4. STOCRIN [Suspect]
     Indication: HIV INFECTION
     Route: 065
     Dates: start: 20121205
  5. EPIVIR [Suspect]
     Indication: HIV INFECTION
     Route: 065
     Dates: start: 20121205

REACTIONS (6)
  - Chronic hepatitis C [Unknown]
  - Craniocerebral injury [Unknown]
  - Drug ineffective [Unknown]
  - Mental disorder due to a general medical condition [Unknown]
  - Onychomycosis [Unknown]
  - Hypotonia [Unknown]
